FAERS Safety Report 23923139 (Version 1)
Quarter: 2024Q2

REPORT INFORMATION
  Report Type: Spontaneous
  Country: DE (occurrence: DE)
  Receive Date: 20240531
  Receipt Date: 20240531
  Transmission Date: 20240716
  Serious: Yes (Hospitalization, Other)
  Sender: FDA-Public Use
  Company Number: DE-EMA-DD-20221014-7180171-125704

PATIENT
  Age: 28 Year
  Sex: Female
  Weight: 62.2 kg

DRUGS (14)
  1. VINCRISTINE [Suspect]
     Active Substance: VINCRISTINE
     Indication: Product used for unknown indication
     Dosage: 1.4 MG/ML
     Route: 042
  2. ETOPOSIDE [Suspect]
     Active Substance: ETOPOSIDE
     Indication: Product used for unknown indication
     Dosage: 200 MG/ML
     Route: 042
  3. DOXORUBICIN [Suspect]
     Active Substance: DOXORUBICIN
     Indication: Product used for unknown indication
     Route: 042
  4. METOCLOPRAMIDE [Concomitant]
     Active Substance: METOCLOPRAMIDE
     Indication: Product used for unknown indication
     Dosage: UNK
  5. BLEOMYCIN [Suspect]
     Active Substance: BLEOMYCIN SULFATE
     Indication: Product used for unknown indication
     Route: 042
  6. PROCARBAZINE [Suspect]
     Active Substance: PROCARBAZINE
     Indication: Product used for unknown indication
     Route: 048
  7. COTRIMOXAZOLE [Concomitant]
     Active Substance: SULFAMETHOXAZOLE\TRIMETHOPRIM
     Indication: Product used for unknown indication
     Dosage: 800|160 MG, MON WED FRI ONE TABLET IN THE MORNING; COTRIMOXAZOLE AL FORTE
     Route: 048
  8. TINZAPARIN [Suspect]
     Active Substance: TINZAPARIN
     Indication: Product used for unknown indication
     Dosage: 0-0-1-0, PRE-FILLED SYRINGES
     Route: 058
  9. CYCLOPHOSPHAMIDE [Suspect]
     Active Substance: CYCLOPHOSPHAMIDE
     Indication: Product used for unknown indication
     Route: 042
  10. INNOHEP [Concomitant]
     Active Substance: TINZAPARIN SODIUM
     Indication: Product used for unknown indication
     Dosage: 20000|0.5 IU/ML, ONE SYRINGE IN THE EVENING; INNOHEP 20000 ANTI-XAI.U./ML
     Route: 058
  11. CALCIUM CHLORIDE\SODIUM CHLORIDE\SODIUM PHOSPHATE, DIBASIC, ANHYDROUS\ [Concomitant]
     Active Substance: CALCIUM CHLORIDE\SODIUM CHLORIDE\SODIUM PHOSPHATE, DIBASIC, ANHYDROUS\SODIUM PHOSPHATE, MONOBASIC, A
     Indication: Product used for unknown indication
     Dosage: 7.8|15 MG/ML, FOUR TIMES A PIPETTE IF NECESSARY
     Route: 048
  12. MCP-RATIOPHARM [Concomitant]
     Active Substance: METOCLOPRAMIDE HYDROCHLORIDE
     Indication: Product used for unknown indication
     Dosage: TIME INTERVAL: AS NECESSARY
     Route: 048
  13. ONDANSETRON [Concomitant]
     Active Substance: ONDANSETRON
     Indication: Product used for unknown indication
     Dosage: 8 MG, ONE TABLET IN THE MORNING AND EVENING IF NECESSARY
     Route: 048
  14. PREDNISONE [Suspect]
     Active Substance: PREDNISONE
     Indication: Product used for unknown indication
     Route: 048

REACTIONS (5)
  - Constipation [Unknown]
  - Restlessness [Unknown]
  - General physical health deterioration [Unknown]
  - Thrombocytopenia [Unknown]
  - Vomiting [Unknown]
